FAERS Safety Report 11520817 (Version 1)
Quarter: 2015Q3

REPORT INFORMATION
  Report Type: Spontaneous
  Country: US (occurrence: None)
  Receive Date: 20150917
  Receipt Date: 20150917
  Transmission Date: 20151125
  Serious: Yes (Life-Threatening, Hospitalization, Disabling)
  Sender: FDA-Public Use
  Company Number: None

PATIENT
  Age: 56 Year
  Sex: Female
  Weight: 70.31 kg

DRUGS (7)
  1. LEVOTHYROXINE. [Concomitant]
     Active Substance: LEVOTHYROXINE
  2. VENLAFAXINE HCL [Concomitant]
  3. NITRO [Concomitant]
  4. AMBIEN [Concomitant]
  5. LISINOPRIL [Concomitant]
  6. ASPIRIN [Concomitant]
  7. DUAVEE [Suspect]
     Active Substance: BAZEDOXIFENE ACETATE\ESTROGENS, CONJUGATED
     Dosage: 1 PILL ONCE DAILY
     Route: 048
     Dates: start: 20150125, end: 20150430

REACTIONS (16)
  - Arterial thrombosis [None]
  - Bone pain [None]
  - Vision blurred [None]
  - Cardiac disorder [None]
  - Myocardial infarction [None]
  - Electrocardiogram abnormal [None]
  - Neuralgia [None]
  - Depression [None]
  - Myalgia [None]
  - Insomnia [None]
  - Fluid retention [None]
  - Increased tendency to bruise [None]
  - Hypoaesthesia [None]
  - Weight increased [None]
  - Amnesia [None]
  - Feeling abnormal [None]

NARRATIVE: CASE EVENT DATE: 20150425
